FAERS Safety Report 10249230 (Version 1)
Quarter: 2014Q2

REPORT INFORMATION
  Report Type: Spontaneous
  Country: US (occurrence: None)
  Receive Date: 20140618
  Receipt Date: 20140618
  Transmission Date: 20141212
  Serious: Yes (Hospitalization)
  Sender: FDA-Public Use
  Company Number: 2387921

PATIENT
  Age: 68 Year
  Sex: Male

DRUGS (1)
  1. PHENYLEPHRINE [Suspect]
     Indication: NASAL OPERATION
     Route: 042

REACTIONS (5)
  - Hypertension [None]
  - Wrong technique in drug usage process [None]
  - Acute myocardial infarction [None]
  - Accidental overdose [None]
  - Incorrect dose administered [None]
